FAERS Safety Report 8993531 (Version 1)
Quarter: 2013Q1

REPORT INFORMATION
  Report Type: Spontaneous
  Country: FR (occurrence: FR)
  Receive Date: 20130102
  Receipt Date: 20130102
  Transmission Date: 20140127
  Serious: Yes (Death, Hospitalization)
  Sender: FDA-Public Use
  Company Number: FR-BRISTOL-MYERS SQUIBB COMPANY-17243684

PATIENT
  Age: 79 Year
  Sex: Female

DRUGS (9)
  1. COUMADINE [Suspect]
     Indication: ARRHYTHMIA
     Dosage: COUMADINE 2 MG SCORED TABS ALSO TAKEN.
     Route: 048
  2. DILTIAZEM HCL [Concomitant]
     Dosage: CAPS
  3. PERINDOPRIL [Concomitant]
     Dosage: 1TAB
  4. LASIX [Concomitant]
     Dosage: 0.25MG TAB/DAY
  5. SPIRONOLACTONE [Concomitant]
     Dosage: 1 TAB/DAY
  6. COLCHICINE [Concomitant]
     Dosage: 1TAB/DAY
  7. CRESTOR [Concomitant]
     Dosage: 1TAB/DAY
  8. TEMESTA [Concomitant]
     Dosage: 1TAB/DAY
  9. PAROXETINE [Concomitant]
     Dosage: 1TAB/DAY

REACTIONS (5)
  - Subdural haematoma [Fatal]
  - Confusional state [Recovered/Resolved]
  - Status epilepticus [Unknown]
  - Asthenia [Unknown]
  - Somnolence [Unknown]
